FAERS Safety Report 23552004 (Version 1)
Quarter: 2024Q1

REPORT INFORMATION
  Report Type: Spontaneous
  Country: US (occurrence: US)
  Receive Date: 20240222
  Receipt Date: 20240222
  Transmission Date: 20240410
  Serious: No
  Sender: FDA-Public Use
  Company Number: US-AMGEN-USASP2024034042

PATIENT
  Age: 55 Year
  Sex: Female

DRUGS (2)
  1. AIMOVIG [Suspect]
     Active Substance: ERENUMAB-AOOE
     Indication: Product used for unknown indication
     Dosage: 140 MILLIGRAM, QMO
     Route: 065
     Dates: start: 2022
  2. AIMOVIG [Suspect]
     Active Substance: ERENUMAB-AOOE
     Dosage: 140 MILLIGRAM, QMO
     Route: 065
     Dates: start: 2022

REACTIONS (9)
  - Injury associated with device [Unknown]
  - Wrong technique in product usage process [Unknown]
  - Product administered at inappropriate site [Unknown]
  - Migraine [Unknown]
  - Injection site pain [Unknown]
  - Injection site swelling [Unknown]
  - Injection site bruising [Unknown]
  - Injection site discolouration [Unknown]
  - Injection site induration [Unknown]

NARRATIVE: CASE EVENT DATE: 20240216
